FAERS Safety Report 7582125-5 (Version None)
Quarter: 2011Q2

REPORT INFORMATION
  Report Type: 
  Country: None (occurrence: None)
  Receive Date: 20110630
  Receipt Date: 20110621
  Transmission Date: 20111010
  Serious: No
  Sender: FDA-Public Use
  Company Number: US-BIOGENIDEC-2011BI023030

PATIENT
  Sex: Female

DRUGS (3)
  1. TYSABRI [Suspect]
     Route: 042
     Dates: start: 20061025, end: 20071127
  2. TYSABRI [Suspect]
     Indication: MULTIPLE SCLEROSIS
     Route: 042
     Dates: start: 20100325, end: 20101108
  3. TYSABRI [Suspect]
     Route: 042
     Dates: start: 20080402, end: 20090102

REACTIONS (3)
  - FALL [None]
  - AMNESIA [None]
  - ANKLE FRACTURE [None]
